FAERS Safety Report 22708293 (Version 3)
Quarter: 2025Q3

REPORT INFORMATION
  Report Type: Spontaneous
  Country: CH (occurrence: CH)
  Receive Date: 20230715
  Receipt Date: 20250908
  Transmission Date: 20251020
  Serious: Yes (Other)
  Sender: INCYTE
  Company Number: CH-002147023-NVSC2021CH315469

PATIENT

DRUGS (2)
  1. RUXOLITINIB [Suspect]
     Active Substance: RUXOLITINIB
     Indication: Aicardi-Goutieres syndrome
     Dosage: 0.7 MG/KG, QD
     Route: 065
  2. RUXOLITINIB [Suspect]
     Active Substance: RUXOLITINIB
     Indication: Gene mutation
     Dosage: 1 MG/KG, QD
     Route: 065

REACTIONS (3)
  - Product use in unapproved indication [Unknown]
  - Condition aggravated [Recovered/Resolved]
  - Aicardi-Goutieres syndrome [Recovered/Resolved]
